FAERS Safety Report 15625472 (Version 1)
Quarter: 2018Q4

REPORT INFORMATION
  Report Type: Spontaneous
  Country: US (occurrence: US)
  Receive Date: 20181115
  Receipt Date: 20181115
  Transmission Date: 20190205
  Serious: No
  Sender: FDA-Public Use
  Company Number: None

PATIENT
  Age: 39 Year
  Sex: Female
  Weight: 76.5 kg

DRUGS (4)
  1. CORGARD [Concomitant]
     Active Substance: NADOLOL
  2. GABAPENTIN. [Concomitant]
     Active Substance: GABAPENTIN
  3. NORTRIPTYLINE [Concomitant]
     Active Substance: NORTRIPTYLINE
  4. AIMOVIG [Suspect]
     Active Substance: ERENUMAB-AOOE
     Indication: HEADACHE
     Route: 058

REACTIONS (4)
  - Irritability [None]
  - Weight decreased [None]
  - Decreased appetite [None]
  - Abdominal pain lower [None]

NARRATIVE: CASE EVENT DATE: 20181115
